FAERS Safety Report 5344076-6 (Version None)
Quarter: 2007Q2

REPORT INFORMATION
  Report Type: 
  Country: None (occurrence: None)
  Receive Date: 20070604
  Receipt Date: 20070529
  Transmission Date: 20071010
  Serious: Yes (Life-Threatening, Other)
  Sender: FDA-Public Use
  Company Number: B0466638A

PATIENT
  Age: 7 Year
  Sex: Male

DRUGS (1)
  1. FORTUM [Suspect]
     Indication: TONSILLITIS
     Dosage: 500MG SEE DOSAGE TEXT
     Route: 030
     Dates: start: 20070331, end: 20070331

REACTIONS (1)
  - LOSS OF CONSCIOUSNESS [None]
